FAERS Safety Report 13896857 (Version 1)
Quarter: 2020Q3

REPORT INFORMATION
  Report Type: Report from Study
  Country: JP (occurrence: JP)
  Receive Date: 20170823
  Receipt Date: 20170823
  Transmission Date: 20201104
  Serious: Yes (Death)
  Sender: FDA-Public Use
  Company Number: JP-ASTRAZENECA-2016SF32415

PATIENT
  Age: 77 Year
  Sex: Female
  Weight: 38.8 kg

DRUGS (12)
  1. LASIX [Concomitant]
     Active Substance: FUROSEMIDE
     Indication: OEDEMA
     Route: 048
     Dates: start: 20161019
  2. DICLOFENAC SODIUM. [Concomitant]
     Active Substance: DICLOFENAC SODIUM
     Indication: TUMOUR PAIN
     Route: 048
     Dates: start: 20161207
  3. TREMELIMUMAB. [Suspect]
     Active Substance: TREMELIMUMAB
     Indication: HEPATOBILIARY CANCER
     Dosage: 38.8MG EVERY 4 WEEK (Q4W)
     Route: 042
     Dates: start: 20161028
  4. ALDACTONE [Concomitant]
     Active Substance: SPIRONOLACTONE
     Indication: OEDEMA
     Route: 048
     Dates: start: 20161019
  5. PREDONINE [Concomitant]
     Active Substance: PREDNISOLONE
     Indication: RASH
     Route: 048
     Dates: start: 20161207
  6. NEXIUM [Concomitant]
     Active Substance: ESOMEPRAZOLE MAGNESIUM
     Indication: GASTRITIS
     Route: 048
     Dates: start: 20151203
  7. GLYCYRON (AMMONIUM GLYCYRRHIZATE\GLYCINE\RACEMETHIONINE) [Concomitant]
     Active Substance: AMMONIUM GLYCYRRHIZATE\GLYCINE\RACEMETHIONINE
     Indication: LIVER INJURY
     Dosage: 6
     Route: 048
     Dates: start: 20160530
  8. PURSENNID [Concomitant]
     Indication: CONSTIPATION
     Route: 048
     Dates: start: 20151208
  9. PREDONINE [Concomitant]
     Active Substance: PREDNISOLONE
     Indication: RASH
     Route: 048
     Dates: start: 20160627, end: 20161206
  10. MIYA?BM [Concomitant]
     Active Substance: CLOSTRIDIUM BUTYRICUM SPORES STRAIN M-55
     Indication: CONSTIPATION
     Dosage: 3
     Route: 048
     Dates: start: 20161003
  11. MEDI4736 [Suspect]
     Active Substance: DURVALUMAB
     Indication: HEPATOBILIARY CANCER
     Dosage: 776MG EVERY 4 WEEK (Q4W)
     Route: 042
     Dates: start: 20161028
  12. HIRUDOID [Concomitant]
     Active Substance: GLYCOSAMINOGLYCANS
     Indication: DRY SKIN
     Route: 061
     Dates: start: 20160502

REACTIONS (1)
  - Drug-induced liver injury [Fatal]

NARRATIVE: CASE EVENT DATE: 20161214
